FAERS Safety Report 7098524-4 (Version None)
Quarter: 2010Q4

REPORT INFORMATION
  Report Type: 
  Country: None (occurrence: None)
  Receive Date: 20101104
  Receipt Date: 20101020
  Transmission Date: 20110411
  Serious: Yes (Congenital Anomaly, Other)
  Sender: FDA-Public Use
  Company Number: DSJ-2010-18536

PATIENT
  Age: 1 Day
  Sex: Female
  Weight: 1.358 kg

DRUGS (1)
  1. OLMESARTAN MEDOXOMIL [Suspect]
     Indication: PRODUCT USED FOR UNKNOWN INDICATION
     Dosage: 20 MG, TRANSPLACENTAL
     Route: 064
     Dates: start: 20100921, end: 20101012

REACTIONS (5)
  - CAESAREAN SECTION [None]
  - NEONATAL ANURIA [None]
  - NEONATAL HYPOTENSION [None]
  - PREMATURE BABY [None]
  - RENAL DYSPLASIA [None]
